FAERS Safety Report 9431753 (Version 1)
Quarter: 2013Q3

REPORT INFORMATION
  Report Type: Spontaneous
  Country: US (occurrence: US)
  Receive Date: 20130731
  Receipt Date: 20130731
  Transmission Date: 20140515
  Serious: No
  Sender: FDA-Public Use
  Company Number: US-B.I. PHARMACEUTICALS,INC./RIDGEFIELD-2013-BI-21702BP

PATIENT
  Age: 84 Year
  Sex: Female
  Weight: 43 kg

DRUGS (3)
  1. COMBIVENT [Suspect]
     Indication: LUNG DISORDER
     Dosage: STRENGTH: 20 MCG / 100 MCG; DAILY DOSE: 80MCG/400MCG
     Route: 055
     Dates: start: 20130601, end: 20130609
  2. COMBIVENT [Suspect]
     Indication: LUNG DISORDER
     Dosage: STRENGTH: 18 MCG / 103 MCG; DAILY DOSE: 72MCG/412MCG
     Route: 055
     Dates: start: 201207, end: 20130531
  3. ADVAIR [Concomitant]
     Indication: LUNG DISORDER
     Dosage: FORM:(INHALATION SOLUTION)
     Route: 055

REACTIONS (11)
  - Chest pain [Recovered/Resolved]
  - Tachycardia [Recovered/Resolved]
  - Tremor [Recovered/Resolved]
  - Nervousness [Recovered/Resolved]
  - Eye pain [Recovered/Resolved]
  - Intraocular pressure increased [Not Recovered/Not Resolved]
  - Aphonia [Not Recovered/Not Resolved]
  - Dyspnoea [Not Recovered/Not Resolved]
  - Palpitations [Recovered/Resolved]
  - Off label use [Recovered/Resolved]
  - Off label use [Recovered/Resolved]
